FAERS Safety Report 19193166 (Version 1)
Quarter: 2021Q2

REPORT INFORMATION
  Report Type: Spontaneous
  Country: US (occurrence: US)
  Receive Date: 20210429
  Receipt Date: 20210429
  Transmission Date: 20210717
  Serious: Yes (Death, Hospitalization, Other)
  Sender: FDA-Public Use
  Company Number: US-SA-2021SA139338

PATIENT
  Age: 66 Year
  Sex: Female

DRUGS (8)
  1. ALTEPLASE. [Suspect]
     Active Substance: ALTEPLASE
     Dosage: SINGLE DOSE
  2. HEPARIN [Suspect]
     Active Substance: HEPARIN SODIUM
     Indication: FIBRIN D DIMER INCREASED
     Dosage: 5000 U, BID
  3. ENOXAPARIN SODIUM. [Suspect]
     Active Substance: ENOXAPARIN SODIUM
     Indication: PROPHYLAXIS
  4. METHYLPREDNISOLONE. [Concomitant]
     Active Substance: METHYLPREDNISOLONE
  5. ERTAPENEM. [Concomitant]
     Active Substance: ERTAPENEM SODIUM
     Indication: BACTERIAL INFECTION
  6. HEPARIN [Suspect]
     Active Substance: HEPARIN SODIUM
     Dosage: UNK UNK, CONT (INFUSION)
  7. HYDROCORTISONE. [Concomitant]
     Active Substance: HYDROCORTISONE
  8. PREDNISOLONE. [Concomitant]
     Active Substance: PREDNISOLONE

REACTIONS (14)
  - Pulmonary embolism [Fatal]
  - Acute respiratory distress syndrome [Fatal]
  - Venous thrombosis [Fatal]
  - Drug ineffective [Fatal]
  - Thrombocytopenia [Fatal]
  - Kidney congestion [Fatal]
  - Fibrin D dimer increased [Fatal]
  - Renal tubular necrosis [Fatal]
  - Acute kidney injury [Fatal]
  - Arterial thrombosis [Fatal]
  - Hepatic necrosis [Fatal]
  - Hepatic function abnormal [Fatal]
  - Multiple organ dysfunction syndrome [Fatal]
  - Anaemia [Fatal]
